FAERS Safety Report 6146787-1 (Version None)
Quarter: 2009Q2

REPORT INFORMATION
  Report Type: 
  Country: None (occurrence: None)
  Receive Date: 20090403
  Receipt Date: 20090403
  Transmission Date: 20091009
  Serious: Yes (Other)
  Sender: FDA-Public Use
  Company Number: None

PATIENT
  Sex: Female
  Weight: 61.6892 kg

DRUGS (1)
  1. CHEMET [Suspect]
     Indication: METAL POISONING
     Dosage: 600MG BID PO
     Route: 048
     Dates: start: 20090204, end: 20090213

REACTIONS (1)
  - URTICARIA [None]
